FAERS Safety Report 7235203-4 (Version None)
Quarter: 2011Q1

REPORT INFORMATION
  Report Type: 
  Country: None (occurrence: None)
  Receive Date: 20110120
  Receipt Date: 20110118
  Transmission Date: 20110831
  Serious: Yes (Other)
  Sender: FDA-Public Use
  Company Number: US-BRISTOL-MYERS SQUIBB COMPANY-15491251

PATIENT
  Age: 63 Year
  Sex: Male

DRUGS (9)
  1. ALLOPURINOL [Concomitant]
  2. COLCHICINE [Concomitant]
     Indication: GOUT
     Dosage: 1 DF= 1 TAB, 1 TABLET FOR 7 DAYS AND THEN ONE EVERY OTHER DAY FOR 3-4 DAYS
     Route: 048
  3. AVALIDE [Suspect]
     Dosage: 1 DF=300/25MG
  4. COUMADIN [Concomitant]
  5. ZOCOR [Concomitant]
  6. COREG [Concomitant]
  7. NIACIN [Concomitant]
     Dosage: DISCONTINUED
  8. ZOLOFT [Concomitant]
  9. GLIPIZIDE [Concomitant]
     Dosage: GLIPIZIDE XL

REACTIONS (1)
  - RENAL NEOPLASM [None]
